FAERS Safety Report 17403995 (Version 1)
Quarter: 2020Q1

REPORT INFORMATION
  Report Type: Not Available
  Country: DE (occurrence: DE)
  Receive Date: 20200211
  Receipt Date: 20200211
  Transmission Date: 20200409
  Serious: Yes (Other)
  Sender: FDA-Public Use
  Company Number: DE-SYNTHON BV-IN51PV20_52219

PATIENT
  Age: 82 Year
  Sex: Male

DRUGS (9)
  1. BISOPROLOL 1A PHARMA [Suspect]
     Active Substance: BISOPROLOL
     Indication: PRODUCT USED FOR UNKNOWN INDICATION
     Dosage: 0.5 DOSAGE FORM, 1 DAY
     Route: 065
  2. TAMSULOSIN [Suspect]
     Active Substance: TAMSULOSIN
     Indication: BENIGN PROSTATIC HYPERPLASIA
     Dosage: 1 CAPSULE ONCE DAILY (1 CAPSULE IN THE MORNING)
     Route: 065
  3. MULTAQ [Interacting]
     Active Substance: DRONEDARONE
     Indication: ARRHYTHMIA
     Dosage: 1 TABLET TWICE DAILY (1 TABLET IN THE MORNING AND ONE TABLET IN THE EVENING)
     Route: 065
  4. ELIQUIS [Concomitant]
     Active Substance: APIXABAN
     Indication: HYPERTENSION
  5. TORASEMIDE [Concomitant]
     Active Substance: TORSEMIDE
     Dosage: 0.5 DOSAGE FORM, 1 DAY
     Route: 065
  6. IRBESARTAN 1A PHARMA [Concomitant]
     Indication: HYPERTENSION
  7. AGOPTON [Concomitant]
     Active Substance: LANSOPRAZOLE
     Dosage: 1 DOSAGE FORM, 1 DAY
     Route: 065
  8. ELIQUIS [Concomitant]
     Active Substance: APIXABAN
     Indication: ANTICOAGULANT THERAPY
     Dosage: 1 DOSAGE FORM, 1 DAY
     Route: 065
  9. IRBESARTAN 1A PHARMA [Concomitant]
     Indication: ANTICOAGULANT THERAPY
     Dosage: 0.5 DOSAGE FORM, 1 DAY
     Route: 065
     Dates: start: 1999

REACTIONS (11)
  - General physical health deterioration [Recovered/Resolved]
  - Dyspnoea [Recovered/Resolved]
  - Tendon rupture [Recovered/Resolved]
  - Vertigo positional [Recovered/Resolved]
  - Weight decreased [Recovered/Resolved]
  - Ankle fracture [Recovered/Resolved]
  - Insomnia [Recovered/Resolved]
  - Drug interaction [Unknown]
  - Syncope [Recovered/Resolved]
  - Dizziness [Recovered/Resolved]
  - Asthenia [Recovered/Resolved]
